FAERS Safety Report 7431918-3 (Version None)
Quarter: 2011Q2

REPORT INFORMATION
  Report Type: 
  Country: None (occurrence: None)
  Receive Date: 20110422
  Receipt Date: 20110411
  Transmission Date: 20111010
  Serious: Yes (Other)
  Sender: FDA-Public Use
  Company Number: JP-ELI_LILLY_AND_COMPANY-JP201103005096

PATIENT
  Age: 63 Year
  Sex: Male

DRUGS (8)
  1. FOLIC ACID [Concomitant]
     Dosage: 0.4 MG, UNK
     Dates: start: 20110316, end: 20110401
  2. PANVITAN [Concomitant]
     Dosage: UNK
     Dates: start: 20110401
  3. ALIMTA [Suspect]
     Indication: NON-SMALL CELL LUNG CANCER
     Dosage: 500 MG/M2, OTHER
     Route: 042
     Dates: start: 20110314
  4. MULTIVITAMIN ADDITIVE [Concomitant]
     Dosage: UNK
     Dates: start: 20110316, end: 20110401
  5. PANVITAN [Concomitant]
     Dosage: UNK
     Dates: end: 20110315
  6. FOLIC ACID [Concomitant]
     Dosage: UNK
     Dates: end: 20110315
  7. CISPLATIN [Concomitant]
     Indication: NON-SMALL CELL LUNG CANCER
     Dosage: 75 MG/M2, OTHER
     Route: 042
     Dates: start: 20110314
  8. FOLIC ACID [Concomitant]
     Dosage: UNK
     Dates: start: 20110401

REACTIONS (1)
  - MECHANICAL ILEUS [None]
